FAERS Safety Report 24814733 (Version 1)
Quarter: 2025Q1

REPORT INFORMATION
  Report Type: Spontaneous
  Country: US (occurrence: None)
  Receive Date: 20250106
  Receipt Date: 20250106
  Transmission Date: 20250408
  Serious: Yes (Disabling)
  Sender: FDA-CTU
  Company Number: None

PATIENT
  Age: 62 Year
  Sex: Female
  Weight: 64.8 kg

DRUGS (7)
  1. PAXLOVID [Suspect]
     Active Substance: NIRMATRELVIR\RITONAVIR
     Indication: COVID-19
     Dosage: 30 TABLET(S) TWICE  DAY ORAL ?
     Route: 048
     Dates: start: 20250103, end: 20250104
  2. Nature Thyroid Progesterone [Concomitant]
  3. FISH OIL [Concomitant]
     Active Substance: FISH OIL
  4. vita D [Concomitant]
  5. C [Concomitant]
  6. ZINC [Concomitant]
     Active Substance: ZINC
  7. MINERALS\VITAMINS [Concomitant]
     Active Substance: MINERALS\VITAMINS

REACTIONS (6)
  - Headache [None]
  - Nausea [None]
  - Pruritus [None]
  - Pain [None]
  - Chromaturia [None]
  - Faeces pale [None]

NARRATIVE: CASE EVENT DATE: 20250104
